FAERS Safety Report 5051455-3 (Version None)
Quarter: 2006Q3

REPORT INFORMATION
  Report Type: 
  Country: None (occurrence: None)
  Receive Date: 20060710
  Receipt Date: 20060627
  Transmission Date: 20061208
  Serious: Yes (Other)
  Sender: FDA-Public Use
  Company Number: 2006070251

PATIENT
  Age: 58 Year
  Sex: Female
  Weight: 73.0291 kg

DRUGS (12)
  1. NEURONTIN [Suspect]
     Indication: NECK PAIN
     Dosage: UNKNOWN (100 MG, UNKNOWN) UNKN
     Dates: start: 19980101, end: 19980101
  2. LYRICA [Suspect]
     Indication: NEURALGIA
     Dosage: 25 MG (25 MG, 1 IN 1 D) UNKNOWN
     Dates: start: 20060503
  3. CELEBREX [Suspect]
     Indication: NEURALGIA
  4. PROZAC [Suspect]
     Indication: DRUG USE FOR UNKNOWN INDICATION
     Dates: start: 20020101
  5. PERCOCET [Suspect]
     Indication: NEURALGIA
     Dates: start: 20060301, end: 20060101
  6. PROTONIX [Concomitant]
  7. PRINIVIL [Concomitant]
  8. WELLBUTRIN [Concomitant]
  9. SYNTHROID [Concomitant]
  10. CALCITONIN [Concomitant]
  11. VICODIN [Concomitant]
  12. ALL OTHER THERAPEUTIC PRODUCTS [Concomitant]

REACTIONS (19)
  - ABDOMINAL PAIN [None]
  - ARTHRALGIA [None]
  - BACK PAIN [None]
  - BALANCE DISORDER [None]
  - BREAST OEDEMA [None]
  - DRUG HYPERSENSITIVITY [None]
  - FEELING ABNORMAL [None]
  - FEELING DRUNK [None]
  - GAIT DISTURBANCE [None]
  - GASTROENTERITIS [None]
  - ILL-DEFINED DISORDER [None]
  - INCREASED APPETITE [None]
  - NEURALGIA [None]
  - OEDEMA [None]
  - POLLAKIURIA [None]
  - ROSACEA [None]
  - SOMNOLENCE [None]
  - TENDON DISORDER [None]
  - WEIGHT INCREASED [None]
